FAERS Safety Report 25255151 (Version 1)
Quarter: 2025Q2

REPORT INFORMATION
  Report Type: Spontaneous
  Country: IL (occurrence: IL)
  Receive Date: 20250430
  Receipt Date: 20250430
  Transmission Date: 20250716
  Serious: Yes (Other)
  Sender: Norvium Bioscience
  Company Number: IL-Norvium Bioscience LLC-080107

PATIENT
  Age: 54 Year
  Sex: Female
  Weight: 0 kg

DRUGS (1)
  1. MINOCYCLINE HYDROCHLORIDE [Suspect]
     Active Substance: MINOCYCLINE HYDROCHLORIDE
     Indication: Rosacea

REACTIONS (1)
  - Polyarteritis nodosa [Recovering/Resolving]
